FAERS Safety Report 5021105-0 (Version None)
Quarter: 2006Q2

REPORT INFORMATION
  Report Type: 
  Country: None (occurrence: None)
  Receive Date: 20060608
  Receipt Date: 20060605
  Transmission Date: 20061013
  Serious: Yes (Hospitalization)
  Sender: FDA-Public Use
  Company Number: US-MERCK-0606USA00751

PATIENT
  Sex: Female

DRUGS (1)
  1. HYZAAR [Suspect]
     Indication: HYPERTENSION
     Route: 048

REACTIONS (2)
  - ARRHYTHMIA [None]
  - HYPOKALAEMIA [None]
